FAERS Safety Report 7055392-4 (Version None)
Quarter: 2010Q4

REPORT INFORMATION
  Report Type: 
  Country: None (occurrence: None)
  Receive Date: 20101019
  Receipt Date: 20101019
  Transmission Date: 20110411
  Serious: No
  Sender: FDA-Public Use
  Company Number: None

PATIENT
  Sex: Male
  Weight: 79.3795 kg

DRUGS (3)
  1. SIMVASTATIN [Suspect]
     Dosage: 20 MG DAILY PO
     Route: 048
     Dates: start: 20090404, end: 20100924
  2. SYNTHROID [Concomitant]
  3. LORAZEPAM [Concomitant]

REACTIONS (1)
  - UNEVALUABLE EVENT [None]
